FAERS Safety Report 8000752-8 (Version None)
Quarter: 2011Q4

REPORT INFORMATION
  Report Type: 
  Country: None (occurrence: None)
  Receive Date: 20111222
  Receipt Date: 20111219
  Transmission Date: 20120403
  Serious: Yes (Hospitalization)
  Sender: FDA-Public Use
  Company Number: IT-BRISTOL-MYERS SQUIBB COMPANY-16274714

PATIENT
  Age: 84 Year
  Sex: Female

DRUGS (3)
  1. ESCITALOPRAM [Suspect]
     Indication: DEPRESSION
     Dosage: ON 20-SEP-2011, DOSE REDUCED TO 10MG
     Route: 048
     Dates: start: 20090101
  2. SEROQUEL [Concomitant]
     Indication: DEPRESSION
     Route: 048
  3. IRBESARTAN AND HYDROCHLOROTHIAZIDE [Suspect]
     Indication: HYPERTENSION
     Dosage: 1 DOSAGE FORM = 1 POSOLOGICAL UNIT
     Route: 048
     Dates: start: 20090101, end: 20110920

REACTIONS (3)
  - HYPONATRAEMIA [None]
  - NAUSEA [None]
  - VOMITING [None]
